FAERS Safety Report 5761095-6 (Version None)
Quarter: 2008Q2

REPORT INFORMATION
  Report Type: 
  Country: None (occurrence: None)
  Receive Date: 20080606
  Receipt Date: 20080527
  Transmission Date: 20081010
  Serious: Yes (Other)
  Sender: FDA-Public Use
  Company Number: US-BAYER-200812017BCC

PATIENT
  Age: 90 Year
  Sex: Female
  Weight: 57 kg

DRUGS (3)
  1. ALEVE [Suspect]
     Indication: HEADACHE
     Route: 048
  2. MIGRAINE MEDICATION [Concomitant]
  3. LEVOXINE [Concomitant]

REACTIONS (1)
  - LOSS OF CONSCIOUSNESS [None]
